FAERS Safety Report 24573319 (Version 2)
Quarter: 2024Q4

REPORT INFORMATION
  Report Type: Report from Study
  Country: IT (occurrence: IT)
  Receive Date: 20241101
  Receipt Date: 20241121
  Transmission Date: 20250114
  Serious: Yes (Hospitalization)
  Sender: TEVA
  Company Number: None

PATIENT
  Age: 55 Year
  Sex: Female
  Weight: 78 kg

DRUGS (9)
  1. METHOTREXATE [Suspect]
     Active Substance: METHOTREXATE
     Indication: Allogenic stem cell transplantation
     Dosage: 15 MG/M2 (29 MG/DAY) ON 28/09, 01/10, METOTRESSATO TEVA
     Route: 042
     Dates: start: 20240928, end: 20241001
  2. CYCLOPHOSPHAMIDE [Concomitant]
     Active Substance: CYCLOPHOSPHAMIDE
     Indication: Allogenic stem cell transplantation
     Dosage: CICLOFOSFAMIDE
     Route: 042
     Dates: start: 20240920, end: 20240921
  3. THYMOGLOBULINE [Concomitant]
     Active Substance: LAPINE T-LYMPHOCYTE IMMUNE GLOBULIN
     Indication: Allogenic stem cell transplantation
     Dosage: 2 MG/KG
     Route: 042
     Dates: start: 20240920, end: 20240922
  4. LETERMOVIR [Concomitant]
     Active Substance: LETERMOVIR
     Indication: Allogenic stem cell transplantation
     Route: 042
     Dates: start: 20240926
  5. RITUXIMAB [Concomitant]
     Active Substance: RITUXIMAB
     Indication: Allogenic stem cell transplantation
     Route: 042
     Dates: start: 20240923, end: 20240923
  6. POSACONAZOLE [Concomitant]
     Active Substance: POSACONAZOLE
     Indication: Allogenic stem cell transplantation
     Dosage: POSACONAZOLO
     Route: 048
     Dates: start: 20240926
  7. ACYCLOVIR [Concomitant]
     Active Substance: ACYCLOVIR
     Indication: Allogenic stem cell transplantation
     Route: 048
     Dates: start: 20240926
  8. CYCLOSPORINE [Suspect]
     Active Substance: CYCLOSPORINE
     Indication: Allogenic stem cell transplantation
     Route: 042
     Dates: start: 20240922, end: 20241001
  9. FLUDARABINE PHOSPHATE [Concomitant]
     Active Substance: FLUDARABINE PHOSPHATE
     Indication: Allogenic stem cell transplantation
     Route: 042
     Dates: start: 20240920, end: 20240921

REACTIONS (1)
  - Toxic encephalopathy [Recovering/Resolving]

NARRATIVE: CASE EVENT DATE: 20241001
